FAERS Safety Report 12266254 (Version 1)
Quarter: 2016Q2

REPORT INFORMATION
  Report Type: Spontaneous
  Country: US (occurrence: None)
  Receive Date: 20160413
  Receipt Date: 20160413
  Transmission Date: 20160815
  Serious: Yes (Other)
  Sender: FDA-Public Use
  Company Number: None

PATIENT
  Age: 53 Year
  Sex: Female
  Weight: 81.65 kg

DRUGS (3)
  1. SUPREP BOWEL PREP [Suspect]
     Active Substance: MAGNESIUM SULFATE\POTASSIUM SULFATE\SODIUM SULFATE
     Indication: BOWEL PREPARATION
     Dosage: 1-2 DOSES
     Route: 048
     Dates: start: 20160329, end: 20160329
  2. MICROZIDE [Concomitant]
     Active Substance: HYDROCHLOROTHIAZIDE
  3. MULTIVITAMIN [Concomitant]
     Active Substance: VITAMINS

REACTIONS (8)
  - Nausea [None]
  - Balance disorder [None]
  - Dizziness [None]
  - Vomiting [None]
  - Product use issue [None]
  - Headache [None]
  - Abdominal distension [None]
  - Dehydration [None]

NARRATIVE: CASE EVENT DATE: 20160329
